FAERS Safety Report 10534850 (Version 1)
Quarter: 2014Q4

REPORT INFORMATION
  Report Type: Spontaneous
  Country: MX (occurrence: MX)
  Receive Date: 20141022
  Receipt Date: 20141022
  Transmission Date: 20150529
  Serious: Yes (Other)
  Sender: FDA-Public Use
  Company Number: MX-PFIZER INC-2014289031

PATIENT
  Age: 39 Year
  Sex: Male
  Weight: 89.7 kg

DRUGS (1)
  1. LOPID [Suspect]
     Active Substance: GEMFIBROZIL
     Indication: LIPIDS INCREASED
     Dosage: 1 DF, 1X/DAY
     Route: 048
     Dates: start: 20141009, end: 20141010

REACTIONS (1)
  - Chest pain [Recovered/Resolved]

NARRATIVE: CASE EVENT DATE: 20141010
